FAERS Safety Report 9636111 (Version 2)
Quarter: 2014Q1

REPORT INFORMATION
  Report Type: Report from Study
  Country: JP (occurrence: JP)
  Receive Date: 20131021
  Receipt Date: 20140117
  Transmission Date: 20141002
  Serious: Yes (Other)
  Sender: FDA-Public Use
  Company Number: JP-AMGEN-JPNCT2013073290

PATIENT
  Age: 52 Year
  Sex: Female
  Weight: 57 kg

DRUGS (14)
  1. ROMIPLOSTIM - KHK [Suspect]
     Indication: IMMUNE THROMBOCYTOPENIC PURPURA
     Dosage: 2 MUG/KG, QWK
     Route: 058
     Dates: start: 20120316, end: 20120419
  2. PREDONINE                          /00016201/ [Concomitant]
     Indication: IMMUNE THROMBOCYTOPENIC PURPURA
     Dosage: 8 MG, QD
     Route: 048
     Dates: start: 20120228, end: 20120304
  3. REVOLADE [Concomitant]
     Indication: IMMUNE THROMBOCYTOPENIC PURPURA
     Dosage: 12.5 MG,  QD
     Route: 048
     Dates: start: 20120313, end: 20120315
  4. CHICHINA [Concomitant]
     Indication: UTERINE LEIOMYOMA
     Dosage: UNK
     Route: 065
  5. RIKAVARIN [Concomitant]
     Indication: UTERINE LEIOMYOMA
     Dosage: UNK
     Route: 065
  6. FERROMIA [Concomitant]
     Indication: IRON DEFICIENCY ANAEMIA
     Dosage: UNK
     Route: 048
  7. PARTAN M [Concomitant]
     Indication: UTERINE LEIOMYOMA
     Dosage: UNK
     Route: 048
  8. TRANSAMIN [Concomitant]
     Indication: UTERINE LEIOMYOMA
     Dosage: UNK
     Route: 048
  9. ADONA                              /00056903/ [Concomitant]
     Indication: UTERINE LEIOMYOMA
     Dosage: UNK
     Route: 048
  10. BAKTAR [Concomitant]
     Indication: PROPHYLAXIS
     Dosage: UNK
     Route: 048
  11. NORLUTEN [Concomitant]
     Indication: UTERINE LEIOMYOMA
     Dosage: UNK
     Route: 048
  12. PREMARIN [Concomitant]
     Indication: UTERINE LEIOMYOMA
     Dosage: UNK
     Route: 048
  13. DINAGEST [Concomitant]
     Indication: UTERINE LEIOMYOMA
     Dosage: UNK
     Route: 048
  14. LEUPLIN [Concomitant]
     Indication: UTERINE LEIOMYOMA
     Dosage: UNK
     Route: 065

REACTIONS (5)
  - Lacunar infarction [Recovering/Resolving]
  - Sepsis [Recovered/Resolved]
  - White blood cell count increased [Recovered/Resolved]
  - Neutrophil count increased [Recovered/Resolved]
  - Neutrophil count increased [Recovered/Resolved]
